FAERS Safety Report 24955054 (Version 5)
Quarter: 2025Q2

REPORT INFORMATION
  Report Type: Spontaneous
  Country: US (occurrence: US)
  Receive Date: 20250211
  Receipt Date: 20250425
  Transmission Date: 20250717
  Serious: No
  Sender: PFIZER
  Company Number: US-PFIZER INC-202500021506

PATIENT
  Age: 66 Year
  Sex: Female

DRUGS (9)
  1. TUKYSA [Suspect]
     Active Substance: TUCATINIB
     Indication: HER2 positive breast cancer
     Dosage: TUKYSA 150MG, 2 TABLETS TWICE DAILY
     Route: 048
  2. TUKYSA [Suspect]
     Active Substance: TUCATINIB
     Indication: Breast cancer metastatic
  3. CLONAZEPAM [Concomitant]
     Active Substance: CLONAZEPAM
  4. CLONAZEPAM [Concomitant]
     Active Substance: CLONAZEPAM
     Dosage: 1 MG, 4X/DAY
  5. MEMANTINE [Concomitant]
     Active Substance: MEMANTINE
  6. OXYCODONE [Concomitant]
     Active Substance: OXYCODONE
  7. PERCOCET [Concomitant]
     Active Substance: ACETAMINOPHEN\OXYCODONE HYDROCHLORIDE
  8. TRAZODONE [Concomitant]
     Active Substance: TRAZODONE HYDROCHLORIDE
     Indication: Sleep disorder
     Dosage: 50 MG, 1X/DAY (AT NIGHT)
  9. VENLAFAXINE [Concomitant]
     Active Substance: VENLAFAXINE HYDROCHLORIDE

REACTIONS (3)
  - Fatigue [Unknown]
  - Nasopharyngitis [Unknown]
  - Decreased appetite [Unknown]
